FAERS Safety Report 16542272 (Version 1)
Quarter: 2019Q3

REPORT INFORMATION
  Report Type: Spontaneous
  Country: DE (occurrence: DE)
  Receive Date: 20190708
  Receipt Date: 20190708
  Transmission Date: 20191004
  Serious: Yes (Hospitalization, Other)
  Sender: FDA-Public Use
  Company Number: PHHY2019DE151473

PATIENT
  Age: 79 Year
  Sex: Female
  Weight: 48 kg

DRUGS (6)
  1. LEVODOPA+CARBIDOPA [Suspect]
     Active Substance: CARBIDOPA\LEVODOPA
     Indication: PARKINSON^S DISEASE
     Dosage: 25 MG, Q6H
     Route: 065
  2. QUETIAPINE. [Suspect]
     Active Substance: QUETIAPINE
     Indication: DELUSION
     Dosage: NOCTURNAL
     Route: 065
  3. LEVODOPA [Suspect]
     Active Substance: LEVODOPA
     Indication: PARKINSON^S DISEASE
     Route: 065
  4. PIRIBEDIL [Suspect]
     Active Substance: PIRIBEDIL
     Indication: PARKINSON^S DISEASE
     Dosage: 50 MG, Q8H
     Route: 065
  5. VENLAFAXINE [Concomitant]
     Active Substance: VENLAFAXINE HYDROCHLORIDE
     Indication: DEPRESSION
     Route: 065
  6. ROTIGOTINE [Suspect]
     Active Substance: ROTIGOTINE
     Indication: PARKINSON^S DISEASE
     Dosage: 4 MG, Q24H
     Route: 065

REACTIONS (5)
  - Dropped head syndrome [Recovered/Resolved]
  - Circulatory collapse [Recovered/Resolved]
  - Vomiting [Recovered/Resolved]
  - Orthostatic intolerance [Recovered/Resolved]
  - Nausea [Recovered/Resolved]
